FAERS Safety Report 8473127-5 (Version None)
Quarter: 2012Q2

REPORT INFORMATION
  Report Type: 
  Country: None (occurrence: None)
  Receive Date: 20120627
  Receipt Date: 20120616
  Transmission Date: 20120825
  Serious: Yes (Other)
  Sender: FDA-Public Use
  Company Number: JP-VERTEX PHARMACEUTICALS INC.-AE-2012-006414

PATIENT
  Age: 59 Year
  Sex: Male

DRUGS (10)
  1. REBETOL [Concomitant]
     Route: 048
     Dates: start: 20120331
  2. PEG-INTRON [Concomitant]
     Indication: HEPATITIS C
     Route: 058
     Dates: start: 20120302, end: 20120323
  3. REBETOL [Concomitant]
     Indication: HEPATITIS C
     Route: 048
     Dates: start: 20120302, end: 20120330
  4. PREDNISOLONE [Concomitant]
     Route: 048
     Dates: start: 20120316, end: 20120322
  5. PEG-INTRON [Concomitant]
     Route: 058
     Dates: start: 20120330
  6. PREDNISOLONE [Concomitant]
     Route: 048
     Dates: start: 20120309, end: 20120315
  7. TELAVIC (TELAPREVIR) [Suspect]
     Indication: HEPATITIS C
     Route: 048
     Dates: start: 20120302, end: 20120416
  8. PREDNISOLONE [Concomitant]
     Route: 048
     Dates: start: 20120323, end: 20120329
  9. TELAVIC (TELAPREVIR) [Suspect]
     Route: 048
     Dates: start: 20120417, end: 20120525
  10. PREDNISOLONE [Concomitant]
     Route: 048
     Dates: start: 20120330, end: 20120405

REACTIONS (1)
  - RENAL IMPAIRMENT [None]
